FAERS Safety Report 13507423 (Version 2)
Quarter: 2017Q4

REPORT INFORMATION
  Report Type: Report from Study
  Country: US (occurrence: US)
  Receive Date: 20170503
  Receipt Date: 20171020
  Transmission Date: 20180320
  Serious: Yes (Other)
  Sender: FDA-Public Use
  Company Number: PHEH2017US012454

PATIENT
  Sex: Female

DRUGS (1)
  1. AFINITOR [Suspect]
     Active Substance: EVEROLIMUS
     Indication: ASTROCYTOMA, LOW GRADE
     Dosage: 10 MG, QD
     Route: 061
     Dates: start: 20121006

REACTIONS (5)
  - Pharyngitis streptococcal [Unknown]
  - Fatigue [Unknown]
  - Mood swings [Unknown]
  - Malaise [Unknown]
  - Lymphoedema [Unknown]
